FAERS Safety Report 22678130 (Version 4)
Quarter: 2023Q4

REPORT INFORMATION
  Report Type: Report from Study
  Country: JP (occurrence: None)
  Receive Date: 20230706
  Receipt Date: 20231110
  Transmission Date: 20240110
  Serious: Yes (Death, Hospitalization, Other)
  Sender: FDA-Public Use
  Company Number: 2023A144255

PATIENT
  Age: 75 Year
  Sex: Female

DRUGS (2)
  1. IMFINZI [Suspect]
     Active Substance: DURVALUMAB
     Indication: Hepatocellular carcinoma
     Dosage: 300 MG ONCE, DOSE UNKNOWN
     Route: 041
     Dates: start: 20230530
  2. IMJUDO [Suspect]
     Active Substance: TREMELIMUMAB\TREMELIMUMAB-ACTL
     Indication: Hepatocellular carcinoma
     Dosage: 1500 MG EVERY FOUR WEEKS, DOSE UNKNOWN300.0MG UNKNOWN
     Route: 041
     Dates: start: 20230530, end: 20230530

REACTIONS (8)
  - Peripheral circulatory failure [Fatal]
  - Multiple organ dysfunction syndrome [Fatal]
  - Electrolyte imbalance [Not Recovered/Not Resolved]
  - Nausea [Not Recovered/Not Resolved]
  - Vomiting [Not Recovered/Not Resolved]
  - Spinal cord injury [Unknown]
  - Diarrhoea [Recovering/Resolving]
  - Asthenia [Unknown]

NARRATIVE: CASE EVENT DATE: 20230531
